FAERS Safety Report 12970499 (Version 2)
Quarter: 2016Q4

REPORT INFORMATION
  Report Type: Report from Study
  Country: US (occurrence: US)
  Receive Date: 20161123
  Receipt Date: 20161213
  Transmission Date: 20170207
  Serious: Yes (Hospitalization)
  Sender: FDA-Public Use
  Company Number: US-CELGENEUS-USA-2016115329

PATIENT
  Age: 79 Year
  Sex: Female
  Weight: 52.39 kg

DRUGS (22)
  1. FENTANYL. [Concomitant]
     Active Substance: FENTANYL
     Indication: NON-CARDIAC CHEST PAIN
     Dosage: 25 MCG
     Route: 062
     Dates: start: 20160618
  2. POLYETHYLENE GLYCOL [Concomitant]
     Active Substance: POLYETHYLENE GLYCOLS
     Indication: CONSTIPATION
     Route: 065
     Dates: start: 20161114
  3. RED BLOOD CELLS [Concomitant]
     Active Substance: HUMAN RED BLOOD CELL
     Indication: ANAEMIA
     Route: 065
     Dates: start: 20161117, end: 20161118
  4. CEFTRIAXONE. [Concomitant]
     Active Substance: CEFTRIAXONE
     Indication: URINARY TRACT INFECTION
     Route: 065
     Dates: start: 20161114, end: 20161116
  5. ABRAXANE [Suspect]
     Active Substance: PACLITAXEL
     Indication: NON-SMALL CELL LUNG CANCER
     Dosage: 151 MG
     Route: 041
     Dates: start: 20160907, end: 20161109
  6. CARBOPLATIN. [Suspect]
     Active Substance: CARBOPLATIN
     Indication: NON-SMALL CELL LUNG CANCER
     Dosage: 433 MG
     Route: 041
     Dates: start: 20160907, end: 20161109
  7. DEXTROSE SODIUM CHLORIDE [Concomitant]
     Indication: FLUID REPLACEMENT
     Route: 065
     Dates: start: 20161114, end: 20161118
  8. MPDL3280A (ATEZOLIZUMAB) [Suspect]
     Active Substance: ATEZOLIZUMAB
     Indication: NON-SMALL CELL LUNG CANCER
     Dosage: 1200 MG
     Route: 041
     Dates: start: 20160907, end: 20161109
  9. FLEET ENEMA [Concomitant]
     Active Substance: SODIUM PHOSPHATE, DIBASIC\SODIUM PHOSPHATE, MONOBASIC
     Indication: CONSTIPATION
     Dosage: 1 BOTTLE
     Route: 054
     Dates: start: 20160912, end: 20160913
  10. ECOTRIN [Concomitant]
     Active Substance: ASPIRIN
     Indication: DEEP VEIN THROMBOSIS
     Route: 065
     Dates: start: 20161116, end: 20161118
  11. FAMOTIDINE. [Concomitant]
     Active Substance: FAMOTIDINE
     Indication: GASTROOESOPHAGEAL REFLUX DISEASE
     Route: 065
     Dates: start: 20161115, end: 20161118
  12. INSULIN LISPRO [Concomitant]
     Active Substance: INSULIN LISPRO
     Indication: HYPERGLYCAEMIA
     Route: 065
     Dates: start: 20161115, end: 20161118
  13. LEVETIRACETAM. [Concomitant]
     Active Substance: LEVETIRACETAM
     Indication: CEREBROVASCULAR ACCIDENT
     Route: 065
     Dates: start: 20161115
  14. SIMVASTATIN. [Concomitant]
     Active Substance: SIMVASTATIN
     Indication: CEREBROVASCULAR ACCIDENT
     Route: 065
     Dates: start: 20161115
  15. FLUOXETINE [Concomitant]
     Active Substance: FLUOXETINE HYDROCHLORIDE
     Indication: DEPRESSION
     Dosage: 10 MG
     Route: 048
     Dates: start: 201605, end: 20160822
  16. SIMVASTATIN. [Concomitant]
     Active Substance: SIMVASTATIN
     Indication: DYSPHAGIA
  17. PERCOCET [Concomitant]
     Active Substance: ACETAMINOPHEN\OXYCODONE HYDROCHLORIDE
     Indication: NON-CARDIAC CHEST PAIN
     Dosage: 5/325MG
     Route: 048
     Dates: start: 20160611
  18. MELOXICAM. [Concomitant]
     Active Substance: MELOXICAM
     Indication: PAIN IN EXTREMITY
     Dosage: 7.5 MG
     Route: 048
     Dates: start: 20160818, end: 20160827
  19. DECADRON [Concomitant]
     Active Substance: DEXAMETHASONE
     Indication: HEADACHE
     Dosage: 2 MG
     Route: 048
     Dates: start: 20160801, end: 20160805
  20. NEURONTIN [Concomitant]
     Active Substance: GABAPENTIN
     Indication: NEURALGIA
     Route: 065
     Dates: start: 20161115
  21. LEVETIRACETAM. [Concomitant]
     Active Substance: LEVETIRACETAM
     Indication: APHASIA
  22. CEFTRIAXONE. [Concomitant]
     Active Substance: CEFTRIAXONE
     Indication: CYSTITIS

REACTIONS (5)
  - Neutrophil count decreased [Recovered/Resolved]
  - Fatigue [Unknown]
  - Confusional state [Not Recovered/Not Resolved]
  - Decreased appetite [Unknown]
  - Anaemia [Unknown]

NARRATIVE: CASE EVENT DATE: 20161012
